FAERS Safety Report 5652529-6 (Version None)
Quarter: 2008Q1

REPORT INFORMATION
  Report Type: 
  Country: None (occurrence: None)
  Receive Date: 20080305
  Receipt Date: 20080305
  Transmission Date: 20080703
  Serious: Yes (Hospitalization)
  Sender: FDA-Public Use
  Company Number: None

PATIENT
  Age: 42 Year
  Sex: Female
  Weight: 72.5755 kg

DRUGS (2)
  1. LYRICA [Suspect]
     Indication: NEURALGIA
     Dosage: 150 MG BID PO
     Route: 048
     Dates: start: 20080121, end: 20080201
  2. GABAPENTIN [Suspect]
     Indication: NEURALGIA
     Dosage: 1200 MG TID PO
     Route: 048
     Dates: start: 20071121, end: 20080110

REACTIONS (1)
  - SUICIDAL IDEATION [None]
